FAERS Safety Report 11434015 (Version 6)
Quarter: 2016Q1

REPORT INFORMATION
  Report Type: Spontaneous
  Country: US (occurrence: US)
  Receive Date: 20150831
  Receipt Date: 20160301
  Transmission Date: 20160525
  Serious: Yes (Other)
  Sender: FDA-Public Use
  Company Number: US-ASTRAZENECA-2015SE17150

PATIENT
  Age: 772 Month
  Sex: Male
  Weight: 98 kg

DRUGS (16)
  1. CRESTOR [Suspect]
     Active Substance: ROSUVASTATIN CALCIUM
     Indication: BLOOD CHOLESTEROL INCREASED
     Route: 048
     Dates: start: 20110330
  2. ATENOLOL. [Concomitant]
     Active Substance: ATENOLOL
  3. GLYBURIDE. [Concomitant]
     Active Substance: GLYBURIDE
  4. BUPROPION HYDROCHLORIDE. [Concomitant]
     Active Substance: BUPROPION HYDROCHLORIDE
     Dates: start: 1999
  5. RAMIPRIL. [Concomitant]
     Active Substance: RAMIPRIL
     Dates: start: 1999
  6. DIOVAN [Concomitant]
     Active Substance: VALSARTAN
  7. CRESTOR [Suspect]
     Active Substance: ROSUVASTATIN CALCIUM
     Indication: BLOOD CHOLESTEROL INCREASED
     Route: 048
     Dates: start: 199906
  8. EPINEPHRINE. [Concomitant]
     Active Substance: EPINEPHRINE
     Dates: start: 1999
  9. GLIPIZIDE. [Concomitant]
     Active Substance: GLIPIZIDE
     Dates: start: 1999
  10. ATORVASTATIN [Concomitant]
     Active Substance: ATORVASTATIN
  11. PLAVIX [Concomitant]
     Active Substance: CLOPIDOGREL BISULFATE
     Route: 048
  12. TOPROL XL [Concomitant]
     Active Substance: METOPROLOL SUCCINATE
  13. FINASTERIDE. [Concomitant]
     Active Substance: FINASTERIDE
     Dates: start: 1999
  14. TAMSULOSIN [Concomitant]
     Active Substance: TAMSULOSIN
     Dates: start: 1999
  15. GLUCOPHAGE [Concomitant]
     Active Substance: METFORMIN HYDROCHLORIDE
  16. ASPIRIN. [Concomitant]
     Active Substance: ASPIRIN
     Route: 048

REACTIONS (16)
  - Cardiomyopathy [Unknown]
  - Myalgia [Not Recovered/Not Resolved]
  - Cardiac failure congestive [Not Recovered/Not Resolved]
  - Hypertension [Not Recovered/Not Resolved]
  - Type 2 diabetes mellitus [Not Recovered/Not Resolved]
  - Coronary artery disease [Unknown]
  - Angina pectoris [Unknown]
  - Arrhythmia [Unknown]
  - Obesity [Unknown]
  - Constipation [Not Recovered/Not Resolved]
  - Rhabdomyolysis [Not Recovered/Not Resolved]
  - Diabetic retinopathy [Unknown]
  - Headache [Not Recovered/Not Resolved]
  - Cardiovascular disorder [Unknown]
  - Depression [Unknown]
  - Blood triglycerides increased [Unknown]

NARRATIVE: CASE EVENT DATE: 199906
